FAERS Safety Report 15581017 (Version 1)
Quarter: 2018Q4

REPORT INFORMATION
  Report Type: Spontaneous
  Country: FR (occurrence: FR)
  Receive Date: 20181105
  Receipt Date: 20181105
  Transmission Date: 20190205
  Serious: Yes (Other)
  Sender: FDA-Public Use
  Company Number: FR-BRISTOL-MYERS SQUIBB COMPANY-BMS-2018-102037

PATIENT
  Age: 90 Year
  Sex: Female
  Weight: 38 kg

DRUGS (1)
  1. ELIQUIS [Suspect]
     Active Substance: APIXABAN
     Indication: CEREBROVASCULAR ACCIDENT PROPHYLAXIS
     Dosage: 2.5 MG, UNK
     Route: 065

REACTIONS (7)
  - Fall [Unknown]
  - Pelvic fracture [Unknown]
  - Haematoma [Unknown]
  - Renal impairment [Unknown]
  - Humerus fracture [Unknown]
  - Cognitive disorder [Unknown]
  - Anaemia [Unknown]
